FAERS Safety Report 7408197-6 (Version None)
Quarter: 2011Q2

REPORT INFORMATION
  Report Type: 
  Country: None (occurrence: None)
  Receive Date: 20110412
  Receipt Date: 20110216
  Transmission Date: 20111010
  Serious: Yes (Hospitalization, Other)
  Sender: FDA-Public Use
  Company Number: US-BAYER-201031616NA

PATIENT
  Age: 48 Year
  Sex: Female
  Weight: 65.76 kg

DRUGS (3)
  1. YAZ [Suspect]
     Indication: ACNE
     Dosage: UNK
     Route: 048
     Dates: start: 20050101, end: 20070701
  2. UNIVASC [Concomitant]
     Indication: HYPERTENSION
     Dosage: UNK
     Route: 048
     Dates: start: 20030101
  3. YASMIN [Suspect]
     Indication: ACNE
     Route: 048
     Dates: start: 20050101, end: 20070701

REACTIONS (2)
  - JUGULAR VEIN THROMBOSIS [None]
  - NECK PAIN [None]
